FAERS Safety Report 13446761 (Version 1)
Quarter: 2017Q2

REPORT INFORMATION
  Report Type: Spontaneous
  Country: US (occurrence: US)
  Receive Date: 20170414
  Receipt Date: 20170414
  Transmission Date: 20170830
  Serious: Yes (Other)
  Sender: FDA-Public Use
  Company Number: None

PATIENT
  Age: 29 Year
  Sex: Female
  Weight: 52.21 kg

DRUGS (1)
  1. MIRENA [Suspect]
     Active Substance: LEVONORGESTREL

REACTIONS (6)
  - Feeding disorder [None]
  - Panic attack [None]
  - Blood testosterone increased [None]
  - Fatigue [None]
  - Expired device used [None]
  - Vitamin D deficiency [None]

NARRATIVE: CASE EVENT DATE: 20170315
